FAERS Safety Report 6010106-1 (Version None)
Quarter: 2008Q4

REPORT INFORMATION
  Report Type: 
  Country: None (occurrence: None)
  Receive Date: 20081217
  Receipt Date: 20081217
  Transmission Date: 20090506
  Serious: No
  Sender: FDA-Public Use
  Company Number: None

PATIENT

DRUGS (5)
  1. BUSPIRONE HCL [Suspect]
     Indication: ANXIETY
     Dosage: 150 DAILY MOUTH
     Route: 048
  2. BUSPIRONE HCL [Suspect]
     Indication: BIPOLAR I DISORDER
     Dosage: 150 DAILY MOUTH
     Route: 048
  3. WELLBUTRIN SR [Suspect]
     Indication: ANXIETY
     Dosage: 150 DAILY MOUTH
     Route: 048
  4. WELLBUTRIN SR [Suspect]
     Indication: BIPOLAR I DISORDER
     Dosage: 150 DAILY MOUTH
     Route: 048
  5. ZOLOFT [Suspect]

REACTIONS (3)
  - DEPRESSION [None]
  - INSOMNIA [None]
  - POOR QUALITY SLEEP [None]
